FAERS Safety Report 4831597-5 (Version None)
Quarter: 2005Q4

REPORT INFORMATION
  Report Type: 
  Country: None (occurrence: None)
  Receive Date: 20051116
  Receipt Date: 20051107
  Transmission Date: 20060501
  Serious: Yes (Hospitalization)
  Sender: FDA-Public Use
  Company Number: 2005151800

PATIENT
  Age: 72 Year
  Sex: Female

DRUGS (9)
  1. ALPRAZOLAM [Suspect]
     Indication: HERPES ZOSTER
     Dosage: 0.75 MG (0.25 MG, 3 IN 1 D), ORAL
     Route: 048
     Dates: end: 20050526
  2. ALPRAZOLAM [Suspect]
     Indication: NERVOUS SYSTEM DISORDER
     Dosage: 0.75 MG (0.25 MG, 3 IN 1 D), ORAL
     Route: 048
     Dates: end: 20050526
  3. NEURONTIN [Suspect]
     Indication: HERPES ZOSTER
     Dosage: 1200 MG (400 MG, 3 IN 1 D), ORAL
     Route: 048
     Dates: end: 20050526
  4. NEURONTIN [Suspect]
     Indication: NERVOUS SYSTEM DISORDER
     Dosage: 1200 MG (400 MG, 3 IN 1 D), ORAL
     Route: 048
     Dates: end: 20050526
  5. TEGRETOL [Suspect]
     Indication: HERPES ZOSTER
     Dosage: 200 MG (200 MG, 1 IN 1 D), ORAL
     Route: 048
     Dates: end: 20050526
  6. TEGRETOL [Suspect]
     Indication: NERVOUS SYSTEM DISORDER
     Dosage: 200 MG (200 MG, 1 IN 1 D), ORAL
     Route: 048
     Dates: end: 20050526
  7. FUROSEMIDE [Concomitant]
  8. ALDACTONE [Concomitant]
  9. CARVEDILOL [Concomitant]

REACTIONS (3)
  - BRAIN SCAN ABNORMAL [None]
  - CONFUSIONAL STATE [None]
  - HEPATITIS [None]
